FAERS Safety Report 9560527 (Version 1)
Quarter: 2013Q3

REPORT INFORMATION
  Report Type: Spontaneous
  Country: US (occurrence: None)
  Receive Date: 20130906
  Receipt Date: 20130906
  Transmission Date: 20140515
  Serious: No
  Sender: FDA-Public Use
  Company Number: 163-POMAL-13054223

PATIENT
  Age: 69 Year
  Sex: Female

DRUGS (7)
  1. POMALYST [Suspect]
     Indication: PLASMA CELL MYELOMA
     Dosage: 1 MG, 21 IN 28 D, PO
     Route: 048
     Dates: start: 20130327
  2. PREMARIN (ESTROGENS CONJUGATED) [Concomitant]
  3. ZOLPIDEM (ZOLPIDEM) [Concomitant]
  4. AMLODIPINE BESYLATE (AMLODIPINE BESYLATE) [Concomitant]
  5. GABAPENTIN (GABAPENTIN) [Concomitant]
  6. OXYBUTYNIN (OXYBUTYNIN) [Concomitant]
  7. OMEPRAZOLE (OMEPRAZOLE) [Concomitant]

REACTIONS (1)
  - Alopecia [None]
